FAERS Safety Report 12457415 (Version 1)
Quarter: 2016Q2

REPORT INFORMATION
  Report Type: Spontaneous
  Country: AU (occurrence: AU)
  Receive Date: 20160610
  Receipt Date: 20160610
  Transmission Date: 20160815
  Serious: Yes (Disabling)
  Sender: FDA-Public Use
  Company Number: AU-MYLANLABS-2016M1023836

PATIENT

DRUGS (2)
  1. SINGULAIR [Concomitant]
     Active Substance: MONTELUKAST SODIUM
     Indication: ASTHMA
  2. AKAMIN 50 [Suspect]
     Active Substance: MINOCYCLINE HYDROCHLORIDE
     Indication: ACNE
     Dosage: 1 DF, BID

REACTIONS (8)
  - Disturbance in attention [Recovering/Resolving]
  - Arthralgia [Recovering/Resolving]
  - Nausea [Recovering/Resolving]
  - Liver function test increased [Recovering/Resolving]
  - Impaired work ability [Unknown]
  - Headache [Recovering/Resolving]
  - Lupus-like syndrome [Recovering/Resolving]
  - Fatigue [Recovering/Resolving]
